FAERS Safety Report 10598147 (Version 2)
Quarter: 2014Q4

REPORT INFORMATION
  Report Type: Spontaneous
  Country: US (occurrence: US)
  Receive Date: 20141121
  Receipt Date: 20141121
  Transmission Date: 20150529
  Serious: Yes (Disabling)
  Sender: FDA-Public Use
  Company Number: US-009507513-1204USA03754

PATIENT
  Sex: Male
  Weight: 83.45 kg

DRUGS (2)
  1. PROSCAR [Suspect]
     Active Substance: FINASTERIDE
     Dosage: 5MG BREAK INTO 1/4
     Route: 048
     Dates: start: 19980507
  2. PROSCAR [Suspect]
     Active Substance: FINASTERIDE
     Indication: ANDROGENETIC ALOPECIA
     Dosage: 5 MG, QD
     Route: 048
     Dates: start: 19970326, end: 2005

REACTIONS (36)
  - Pollakiuria [Not Recovered/Not Resolved]
  - Eye laser surgery [Unknown]
  - Hypometabolism [Unknown]
  - Disturbance in attention [Not Recovered/Not Resolved]
  - Seborrhoeic dermatitis [Unknown]
  - Pruritus generalised [Unknown]
  - Ejaculation failure [Not Recovered/Not Resolved]
  - Depression [Not Recovered/Not Resolved]
  - Sexual dysfunction [Not Recovered/Not Resolved]
  - Erectile dysfunction [Not Recovered/Not Resolved]
  - Weight decreased [Not Recovered/Not Resolved]
  - Acupuncture [Unknown]
  - Wrong technique in drug usage process [Unknown]
  - Post-traumatic stress disorder [Unknown]
  - Stress [Unknown]
  - Hyperlipidaemia [Unknown]
  - Ejaculation disorder [Not Recovered/Not Resolved]
  - Chronic fatigue syndrome [Not Recovered/Not Resolved]
  - Alopecia scarring [Unknown]
  - Hyperhidrosis [Unknown]
  - Anxiety [Not Recovered/Not Resolved]
  - Insomnia [Not Recovered/Not Resolved]
  - Social avoidant behaviour [Not Recovered/Not Resolved]
  - Irritability [Not Recovered/Not Resolved]
  - Hypothyroidism [Unknown]
  - Thirst [Unknown]
  - Drug ineffective [Unknown]
  - Palpitations [Not Recovered/Not Resolved]
  - Skin disorder [Unknown]
  - Keratosis follicular [Unknown]
  - Rash [Unknown]
  - Cognitive disorder [Not Recovered/Not Resolved]
  - Libido decreased [Not Recovered/Not Resolved]
  - Drug administration error [Unknown]
  - Pharyngeal erythema [Unknown]
  - Blood testosterone decreased [Unknown]

NARRATIVE: CASE EVENT DATE: 1997
